FAERS Safety Report 4955034-5 (Version None)
Quarter: 2006Q1

REPORT INFORMATION
  Report Type: 
  Country: None (occurrence: None)
  Receive Date: 20060322
  Receipt Date: 20060307
  Transmission Date: 20060701
  Serious: Yes (Other)
  Sender: FDA-Public Use
  Company Number: 200510547BWH

PATIENT
  Age: 75 Year
  Sex: Male
  Weight: 70.7611 kg

DRUGS (3)
  1. LEVITRA [Suspect]
     Indication: ERECTILE DYSFUNCTION
     Dosage: SEE IMAGE
     Route: 048
     Dates: start: 20050320
  2. VIAGRA [Suspect]
     Indication: ERECTILE DYSFUNCTION
  3. ASPIRIN [Concomitant]

REACTIONS (30)
  - AMAUROSIS FUGAX [None]
  - BLINDNESS TRANSIENT [None]
  - BLOOD PRESSURE DIASTOLIC DECREASED [None]
  - CARDIAC DISORDER [None]
  - CATARACT [None]
  - CEREBRAL ATROPHY [None]
  - CEREBRAL DISORDER [None]
  - CEREBRAL ISCHAEMIA [None]
  - DIZZINESS [None]
  - DRUG EFFECT DECREASED [None]
  - DRUG INEFFECTIVE [None]
  - EYE PAIN [None]
  - FATIGUE [None]
  - FEELING ABNORMAL [None]
  - GLARE [None]
  - GLAUCOMA [None]
  - HEADACHE [None]
  - HEART RATE DECREASED [None]
  - HYPERLIPIDAEMIA [None]
  - MACULAR DEGENERATION [None]
  - MALAISE [None]
  - MEMORY IMPAIRMENT [None]
  - MIGRAINE [None]
  - OPTIC NERVE CUP/DISC RATIO INCREASED [None]
  - PHARMACEUTICAL PRODUCT COMPLAINT [None]
  - PHOTOPSIA [None]
  - RETINAL ARTERY OCCLUSION [None]
  - RETINAL VEIN OCCLUSION [None]
  - RETINOPATHY [None]
  - THROMBOSIS [None]
